FAERS Safety Report 8807313 (Version 1)
Quarter: 2012Q4

REPORT INFORMATION
  Report Type: 
  Country: GB (occurrence: GB)
  Receive Date: 20120925
  Receipt Date: 20120925
  Transmission Date: 20130627
  Serious: Yes (Hospitalization)
  Sender: FDA-Public Use
  Company Number: GB-WATSON-2012-16508

PATIENT
  Age: 42 Year
  Sex: Male

DRUGS (3)
  1. ROPINIROLE HYDROCHLORIDE (UNKNOWN) [Suspect]
     Indication: PARKINSON^S DISEASE
     Dosage: 8 mg, tid
     Route: 065
  2. ROPINIROLE HYDROCHLORIDE [Suspect]
     Dosage: 6 mg, tid
     Route: 066
  3. RASAGILINE [Concomitant]
     Indication: PARKINSON^S DISEASE
     Dosage: 1 mg, daily
     Route: 065

REACTIONS (1)
  - Jealous delusion [Recovered/Resolved]
